FAERS Safety Report 4307099-1 (Version None)
Quarter: 2004Q1

REPORT INFORMATION
  Report Type: 
  Country: None (occurrence: None)
  Receive Date: 20040225
  Receipt Date: 20040211
  Transmission Date: 20041129
  Serious: Yes (Other)
  Sender: FDA-Public Use
  Company Number: US_0402100753

PATIENT
  Sex: Female

DRUGS (3)
  1. HUMULIN 70/30 [Suspect]
     Dosage: 40 U/IN THE MORNING
  2. HUMULIN 50/50 [Suspect]
     Dosage: 34 U/IN THE EVENING
  3. HUMULIN N [Suspect]
     Dates: start: 19790101

REACTIONS (6)
  - BODY HEIGHT DECREASED [None]
  - DIABETIC NEUROPATHY [None]
  - GAIT DISTURBANCE [None]
  - MEDICAL DEVICE COMPLICATION [None]
  - POSTOPERATIVE INFECTION [None]
  - TREMOR [None]
